FAERS Safety Report 8587983 (Version 6)
Quarter: 2014Q2

REPORT INFORMATION
  Report Type: Spontaneous
  Country: JP (occurrence: JP)
  Receive Date: 20120531
  Receipt Date: 20140606
  Transmission Date: 20141212
  Serious: Yes (Death, Life-Threatening, Other)
  Sender: FDA-Public Use
  Company Number: JP-PFIZER INC-2012123905

PATIENT
  Age: 81 Year
  Sex: Male
  Weight: 52.9 kg

DRUGS (16)
  1. ZITHROMAC [Suspect]
     Indication: PNEUMONIA
     Dosage: 500 MG, 1X/DAY
     Route: 048
     Dates: start: 20120426, end: 20120426
  2. ZITHROMAC [Suspect]
     Indication: PNEUMONIA
     Dosage: 500 MG, 1X/DAY
     Route: 041
     Dates: start: 20120427, end: 20120501
  3. ANCARON [Suspect]
     Indication: VENTRICULAR TACHYCARDIA
     Dosage: 125 MG, 1X/DAY
     Route: 042
     Dates: start: 20120428, end: 20120429
  4. ANCARON [Suspect]
     Dosage: 600 MG, 1X/DAY CONTINUOUS
     Route: 041
     Dates: start: 20120428, end: 20120429
  5. ANCARON [Suspect]
     Dosage: 400 MG, 1X/DAY CONTINUOUS
     Route: 041
     Dates: start: 20120430, end: 20120501
  6. RECOMODULIN [Concomitant]
     Indication: DISSEMINATED INTRAVASCULAR COAGULATION
     Dosage: 12800 IU, 1X/DAY
     Route: 042
     Dates: start: 20120427, end: 20120502
  7. HOKUNALIN [Concomitant]
     Indication: ASTHMA
     Dosage: 2 MG, 1X/DAY
     Route: 062
     Dates: start: 20120427
  8. FENTANYL [Concomitant]
     Indication: SEDATION
     Dosage: 0.1 MG, 1X/DAY CONTINUOUS
     Route: 042
     Dates: start: 20120427, end: 20120427
  9. FENTANYL [Concomitant]
     Dosage: 0.6 MG, 1X/DAY CONTINUOUS
     Route: 042
     Dates: start: 20120428, end: 20120501
  10. NORADRENALINE [Concomitant]
     Indication: SEPTIC SHOCK
     Dosage: 3 MG, 1X/DAY CONTINUOUS
     Route: 042
     Dates: start: 20120427, end: 20120429
  11. DOBUPUM [Concomitant]
     Indication: SEPTIC SHOCK
     Dosage: 150 MG, 1X/DAY CONTINUOUSS
     Route: 042
     Dates: start: 20120427, end: 20120430
  12. SAXIZON [Concomitant]
     Indication: SEPTIC SHOCK
     Dosage: 200 MG, 1X/DAY CONTINUOUS
     Route: 042
     Dates: start: 20120427, end: 20120430
  13. NEUART [Concomitant]
     Indication: DISSEMINATED INTRAVASCULAR COAGULATION
     Dosage: 1500 IU, 1X/DAY
     Route: 042
     Dates: start: 20120428, end: 20120429
  14. MEROPEN [Concomitant]
     Indication: SEPTIC SHOCK
     Dosage: 1 G, 2X/DAY
     Route: 042
     Dates: start: 20120429, end: 20120501
  15. CEFTRIAXONE SODIUM [Concomitant]
     Indication: PNEUMONIA
     Dosage: 1 G, 1X/DAY
     Route: 041
     Dates: start: 20120425, end: 20120427
  16. SULBACILLIN [Concomitant]
     Indication: PNEUMONIA
     Dosage: 3 G, 2X/DAY
     Route: 041
     Dates: start: 20120427, end: 20120428

REACTIONS (5)
  - Multi-organ failure [Fatal]
  - Cardiac arrest [Recovered/Resolved]
  - Shock [Recovered/Resolved]
  - Blood pressure decreased [Recovered/Resolved]
  - Hepatic enzyme increased [Unknown]
